FAERS Safety Report 5974813-9 (Version None)
Quarter: 2008Q4

REPORT INFORMATION
  Report Type: 
  Country: None (occurrence: None)
  Receive Date: 20081201
  Receipt Date: 20081125
  Transmission Date: 20090506
  Serious: Yes (Other)
  Sender: FDA-Public Use
  Company Number: BR-PFIZER INC-2008100614

PATIENT
  Sex: Male
  Weight: 85 kg

DRUGS (2)
  1. DIABINESE [Suspect]
     Indication: BLOOD GLUCOSE INCREASED
     Route: 048
     Dates: start: 20080101
  2. DEXAMETHASONE/MOXIFLOXACIN [Concomitant]

REACTIONS (1)
  - CATARACT OPERATION [None]
